FAERS Safety Report 15046495 (Version 6)
Quarter: 2018Q4

REPORT INFORMATION
  Report Type: Spontaneous
  Country: US (occurrence: US)
  Receive Date: 20180621
  Receipt Date: 20181226
  Transmission Date: 20190204
  Serious: Yes (Hospitalization)
  Sender: FDA-Public Use
  Company Number: US-ACTELION-A-NJ2018-174222

PATIENT
  Age: 51 Year
  Sex: Male
  Weight: 54.42 kg

DRUGS (3)
  1. SILDENAFIL CITRATE. [Concomitant]
     Active Substance: SILDENAFIL CITRATE
  2. OPSUMIT [Suspect]
     Active Substance: MACITENTAN
     Indication: PULMONARY ARTERIAL HYPERTENSION
     Dosage: 10 MG, QD
     Route: 048
  3. REMODULIN [Concomitant]
     Active Substance: TREPROSTINIL

REACTIONS (8)
  - Fall [Unknown]
  - Adverse drug reaction [Unknown]
  - Infection [Unknown]
  - Joint injury [Unknown]
  - Arthralgia [Unknown]
  - Therapy change [Recovered/Resolved]
  - Depression [Unknown]
  - Arthritis [Unknown]

NARRATIVE: CASE EVENT DATE: 20181117
